FAERS Safety Report 16353617 (Version 1)
Quarter: 2019Q2

REPORT INFORMATION
  Report Type: Spontaneous
  Country: US (occurrence: US)
  Receive Date: 20190524
  Receipt Date: 20190524
  Transmission Date: 20190711
  Serious: No
  Sender: FDA-Public Use
  Company Number: US-009507513-1905USA010586

PATIENT
  Sex: Female

DRUGS (2)
  1. PUREGON PEN [Suspect]
     Active Substance: FOLLITROPIN
     Indication: PRODUCT USED FOR UNKNOWN INDICATION
     Dosage: UNK
  2. FOLLISTIM AQ [Suspect]
     Active Substance: FOLLITROPIN
     Dosage: 225 INTERNATIONAL UNIT, DAILY
     Dates: start: 20190404

REACTIONS (4)
  - Product packaging quantity issue [Unknown]
  - Incorrect dose administered [Unknown]
  - Device issue [Unknown]
  - Wrong technique in device usage process [Unknown]

NARRATIVE: CASE EVENT DATE: 20190404
